FAERS Safety Report 5287393-0 (Version None)
Quarter: 2007Q1

REPORT INFORMATION
  Report Type: 
  Country: None (occurrence: None)
  Receive Date: 20070116
  Receipt Date: 20061031
  Transmission Date: 20070707
  Serious: No
  Sender: FDA-Public Use
  Company Number: 2006SP003878

PATIENT
  Age: 46 Year
  Sex: Female
  Weight: 116.1208 kg

DRUGS (9)
  1. LUNESTA [Suspect]
     Indication: INSOMNIA
     Dosage: 3 MG;HS;ORAL
     Route: 048
     Dates: start: 20061030
  2. LISINOPRIL [Concomitant]
  3. LISINOPRIL [Concomitant]
  4. POTASSIUM ACETATE [Concomitant]
  5. NEXIUM [Concomitant]
  6. GLUCOSE 1-PHOSPHATE [Concomitant]
  7. DISODIUM [Concomitant]
  8. VITAMIN CAP [Concomitant]
  9. AMBIEN [Concomitant]

REACTIONS (1)
  - DYSGEUSIA [None]
